FAERS Safety Report 9392206 (Version 1)
Quarter: 2013Q3

REPORT INFORMATION
  Report Type: Spontaneous
  Country: NL (occurrence: NL)
  Receive Date: 20130710
  Receipt Date: 20130710
  Transmission Date: 20140515
  Serious: Yes (Other)
  Sender: FDA-Public Use
  Company Number: NL-AMGEN-NLDSP2013047815

PATIENT
  Age: 66 Year
  Sex: Female

DRUGS (3)
  1. ENBREL [Suspect]
     Indication: RHEUMATOID ARTHRITIS
     Dosage: 50 MG, WEEKLY
     Route: 065
     Dates: start: 20090628
  2. ENBREL [Suspect]
     Dosage: 50 MG, QWK
     Route: 065
  3. MTX /00113801/ [Suspect]
     Dosage: UNK

REACTIONS (3)
  - Road traffic accident [Recovered/Resolved]
  - Wound [Recovered/Resolved]
  - Cystitis [Recovered/Resolved]
